FAERS Safety Report 5467915-7 (Version None)
Quarter: 2007Q3

REPORT INFORMATION
  Report Type: 
  Country: None (occurrence: None)
  Receive Date: 20070820
  Receipt Date: 20070705
  Transmission Date: 20080115
  Serious: No
  Sender: FDA-Public Use
  Company Number: WAES 0701USA03847

PATIENT
  Age: 70 Year
  Sex: Female

DRUGS (9)
  1. JANUVIA [Suspect]
     Indication: DIABETES MELLITUS
     Dosage: 50 MG/DAILY/PO
     Route: 048
     Dates: start: 20061121, end: 20061212
  2. EFFEXOR [Concomitant]
  3. LASIX [Concomitant]
  4. NEURONTIN [Concomitant]
  5. NEXIUM [Concomitant]
  6. SYNTHROID [Concomitant]
  7. TOPROL-XL [Concomitant]
  8. SIMVASTATIN [Concomitant]
  9. SPIRONOLACTONE [Concomitant]

REACTIONS (2)
  - HEPATIC ENZYME INCREASED [None]
  - HEPATIC STEATOSIS [None]
